FAERS Safety Report 7555464-1 (Version None)
Quarter: 2011Q2

REPORT INFORMATION
  Report Type: 
  Country: None (occurrence: None)
  Receive Date: 20110617
  Receipt Date: 20110602
  Transmission Date: 20111010
  Serious: Yes (Other)
  Sender: FDA-Public Use
  Company Number: GB-WATSON-2011-08193

PATIENT
  Age: 29 Year
  Sex: Female

DRUGS (1)
  1. FAMCICLOVIR [Suspect]
     Indication: NECROTISING RETINITIS
     Dosage: UNK
     Route: 048

REACTIONS (2)
  - DRUG HYPERSENSITIVITY [None]
  - SKIN DISORDER [None]
